FAERS Safety Report 4528920-8 (Version None)
Quarter: 2004Q4

REPORT INFORMATION
  Report Type: 
  Country: None (occurrence: None)
  Receive Date: 20041214
  Receipt Date: 20041123
  Transmission Date: 20050328
  Serious: Yes (Other)
  Sender: FDA-Public Use
  Company Number: US_0412108806

PATIENT
  Sex: Female

DRUGS (1)
  1. ZYPREXA [Suspect]
     Dates: start: 19991201, end: 20000601

REACTIONS (3)
  - DIABETES MELLITUS [None]
  - PANCREATIC CARCINOMA [None]
  - PANCREATITIS [None]
